FAERS Safety Report 4621046-4 (Version None)
Quarter: 2005Q1

REPORT INFORMATION
  Report Type: 
  Country: None (occurrence: None)
  Receive Date: 20050325
  Receipt Date: 20050317
  Transmission Date: 20050727
  Serious: Yes (Hospitalization)
  Sender: FDA-Public Use
  Company Number: 2005046980

PATIENT
  Age: 47 Year
  Sex: Female

DRUGS (7)
  1. SOLU-MEDROL [Suspect]
     Indication: BRONCHIAL CARCINOMA
     Dosage: INTRAVENOUS
     Route: 042
     Dates: start: 20041227
  2. CHLORPROMAZINE [Suspect]
     Indication: ILL-DEFINED DISORDER
     Dosage: INTRAVENOUS
     Route: 042
     Dates: start: 20041227, end: 20050102
  3. METOCLOPRAMIDE [Suspect]
     Indication: ILL-DEFINED DISORDER
     Dosage: INTRAVENOUS
     Route: 042
     Dates: start: 20041227
  4. VINORELBINE TARTRATE [Suspect]
     Indication: BRONCHIAL CARCINOMA
     Dosage: (CYCLICAL), INTRAVENOUS
     Route: 042
     Dates: start: 20041227
  5. CISPLATIN [Suspect]
     Indication: ILL-DEFINED DISORDER
     Dosage: (CYCLICAL), INTRAVENOUS
     Route: 042
     Dates: start: 20041227
  6. ONDANSETRON HCL [Suspect]
     Indication: ILL-DEFINED DISORDER
     Dosage: INTRAVENOUS
     Route: 042
     Dates: start: 20041227
  7. CLORAZEPATE DIPOTASSIUM [Concomitant]

REACTIONS (4)
  - ALANINE AMINOTRANSFERASE INCREASED [None]
  - ASPARTATE AMINOTRANSFERASE INCREASED [None]
  - ASTHENIA [None]
  - GAMMA-GLUTAMYLTRANSFERASE INCREASED [None]
